FAERS Safety Report 5534020-0 (Version None)
Quarter: 2007Q4

REPORT INFORMATION
  Report Type: 
  Country: None (occurrence: None)
  Receive Date: 20071205
  Receipt Date: 20071128
  Transmission Date: 20080405
  Serious: Yes (Other)
  Sender: FDA-Public Use
  Company Number: PHBS2007IL20122

PATIENT
  Sex: Male

DRUGS (3)
  1. KEPPRA [Concomitant]
     Indication: EPILEPSY
  2. LAMICTAL ^BURROUGHS WELLCOME^ [Concomitant]
     Indication: EPILEPSY
  3. DIOVAN HCT [Suspect]
     Dosage: 80/12.5MG

REACTIONS (3)
  - CLONIC CONVULSION [None]
  - DYSKINESIA [None]
  - EPILEPSY [None]
